FAERS Safety Report 9967441 (Version 2)
Quarter: 2014Q1

REPORT INFORMATION
  Report Type: Report from Study
  Country: US (occurrence: US)
  Receive Date: 20140305
  Receipt Date: 20140305
  Transmission Date: 20141002
  Serious: Yes (Other)
  Sender: FDA-Public Use
  Company Number: US-ABBVIE-13P-163-1138406-00

PATIENT
  Sex: Female

DRUGS (5)
  1. HUMIRA [Suspect]
     Indication: RHEUMATOID ARTHRITIS
     Dosage: STARTED BETWEEN 2007-2010, DISCONTINUED BETWEEN 2009-2011
     Dates: start: 200707, end: 200908
  2. ENBREL [Suspect]
     Indication: PRODUCT USED FOR UNKNOWN INDICATION
  3. ENBREL [Suspect]
     Dates: start: 2012, end: 20130418
  4. ARMOUR THYROID [Concomitant]
     Indication: HYPOTHYROIDISM
     Dosage: 60 MG DAILY
  5. BLOOD PRESSURE MEDICATION [Concomitant]
     Indication: PRODUCT USED FOR UNKNOWN INDICATION
     Dates: start: 2013

REACTIONS (10)
  - Colon cancer stage IV [Not Recovered/Not Resolved]
  - Metastases to liver [Not Recovered/Not Resolved]
  - Joint arthroplasty [Unknown]
  - Wrist surgery [Unknown]
  - Arthrodesis [Unknown]
  - Drug ineffective [Unknown]
  - Pain [Unknown]
  - Abasia [Unknown]
  - Haemorrhoids [Unknown]
  - Diarrhoea [Unknown]
